FAERS Safety Report 25383631 (Version 1)
Quarter: 2025Q2

REPORT INFORMATION
  Report Type: Report from Study
  Country: US (occurrence: US)
  Receive Date: 20250602
  Receipt Date: 20250602
  Transmission Date: 20250717
  Serious: Yes (Other)
  Sender: ABBVIE
  Company Number: US-ABBVIE-6306090

PATIENT
  Age: 61 Year
  Sex: Female

DRUGS (1)
  1. HUMIRA [Suspect]
     Active Substance: ADALIMUMAB
     Indication: Product used for unknown indication
     Route: 058
     Dates: start: 20250527

REACTIONS (5)
  - Blindness unilateral [Recovered/Resolved]
  - Vitreous floaters [Unknown]
  - Uveitis [Unknown]
  - Dyschromatopsia [Recovered/Resolved]
  - Ophthalmic migraine [Recovering/Resolving]

NARRATIVE: CASE EVENT DATE: 20250501
